FAERS Safety Report 4914124-3 (Version None)
Quarter: 2006Q1

REPORT INFORMATION
  Report Type: 
  Country: None (occurrence: None)
  Receive Date: 20060113
  Receipt Date: 20051115
  Transmission Date: 20060701
  Serious: No
  Sender: FDA-Public Use
  Company Number: 2005SP003998

PATIENT
  Age: 66 Year
  Sex: Female
  Weight: 74.8435 kg

DRUGS (3)
  1. LUNESTA [Suspect]
     Indication: MIDDLE INSOMNIA
     Dosage: 3 MG;HS;ORAL
     Route: 048
     Dates: start: 20051109, end: 20051112
  2. REQUIP [Concomitant]
  3. AMBIEN [Concomitant]

REACTIONS (2)
  - DYSGEUSIA [None]
  - NAUSEA [None]
